FAERS Safety Report 14433067 (Version 1)
Quarter: 2018Q1

REPORT INFORMATION
  Report Type: Spontaneous
  Country: US (occurrence: US)
  Receive Date: 20180124
  Receipt Date: 20180124
  Transmission Date: 20180509
  Serious: No
  Sender: FDA-Public Use
  Company Number: US-PCCINC-T201606475

PATIENT

DRUGS (4)
  1. GABLOFEN [Suspect]
     Active Substance: BACLOFEN
     Dosage: 140 ?G, QD
     Route: 037
     Dates: start: 20160909, end: 20160912
  2. GABLOFEN [Suspect]
     Active Substance: BACLOFEN
     Dosage: 161 ?G, QD
     Route: 037
     Dates: start: 20160912
  3. GABLOFEN [Suspect]
     Active Substance: BACLOFEN
     Indication: MUSCLE SPASTICITY
     Dosage: 96 ?G, QD
     Route: 037
     Dates: start: 20160118
  4. GABLOFEN [Suspect]
     Active Substance: BACLOFEN
     Dosage: 115 ?G, QD
     Route: 037
     Dates: end: 20160909

REACTIONS (3)
  - Device issue [Recovered/Resolved]
  - Overdose [Recovered/Resolved]
  - Withdrawal syndrome [Recovered/Resolved]
